FAERS Safety Report 17205648 (Version 3)
Quarter: 2022Q1

REPORT INFORMATION
  Report Type: Spontaneous
  Country: US (occurrence: US)
  Receive Date: 20191227
  Receipt Date: 20220127
  Transmission Date: 20220424
  Serious: Yes (Death, Hospitalization, Other)
  Sender: FDA-Public Use
  Company Number: US-SUN PHARMACEUTICAL INDUSTRIES LTD-2019R1-231681

PATIENT
  Age: 13 Year
  Sex: Female

DRUGS (1)
  1. SULFAMETHOXAZOLE\TRIMETHOPRIM [Suspect]
     Active Substance: SULFAMETHOXAZOLE\TRIMETHOPRIM
     Indication: Acne
     Dosage: UNK
     Route: 065

REACTIONS (5)
  - Condition aggravated [Fatal]
  - Acute respiratory failure [Fatal]
  - Interstitial lung disease [Unknown]
  - Pneumothorax [Unknown]
  - Pneumomediastinum [Unknown]
